FAERS Safety Report 20955492 (Version 1)
Quarter: 2022Q2

REPORT INFORMATION
  Report Type: Spontaneous
  Country: US (occurrence: None)
  Receive Date: 20220613
  Receipt Date: 20220613
  Transmission Date: 20220721
  Serious: Yes (Other)
  Sender: FDA-Public Use
  Company Number: None

PATIENT
  Age: 52 Year
  Sex: Female

DRUGS (1)
  1. DIMETHYL FUMARATE [Suspect]
     Active Substance: DIMETHYL FUMARATE
     Dosage: FREQUENCY : TWICE A DAY;?
     Route: 048
     Dates: start: 202111

REACTIONS (7)
  - Product supply issue [None]
  - Product dose omission issue [None]
  - Constipation [None]
  - Flushing [None]
  - Dizziness [None]
  - Gastrointestinal disorder [None]
  - Abdominal pain upper [None]

NARRATIVE: CASE EVENT DATE: 20220613
